FAERS Safety Report 26049490 (Version 1)
Quarter: 2025Q4

REPORT INFORMATION
  Report Type: Spontaneous
  Country: TR (occurrence: TR)
  Receive Date: 20251115
  Receipt Date: 20251115
  Transmission Date: 20260118
  Serious: Yes (Other)
  Sender: ABBVIE
  Company Number: TR-ABBVIE-6535429

PATIENT
  Age: 27 Year
  Sex: Male

DRUGS (1)
  1. RINVOQ [Suspect]
     Active Substance: UPADACITINIB
     Indication: Dermatitis atopic
     Dosage: FORM STRENGTH- 15 MILLIGRAM?15 MG/DAY FREQUENTLY AND 30 MG/DAY DURING ATTACK PERIODS
     Route: 048
     Dates: start: 20240524, end: 20250902

REACTIONS (3)
  - Liver function test increased [Recovered/Resolved]
  - Blood creatine phosphokinase increased [Recovered/Resolved]
  - Dermatitis atopic [Unknown]

NARRATIVE: CASE EVENT DATE: 20250901
